FAERS Safety Report 9008850 (Version 1)
Quarter: 2013Q1

REPORT INFORMATION
  Report Type: Spontaneous
  Country: CA (occurrence: CA)
  Receive Date: 20130111
  Receipt Date: 20130111
  Transmission Date: 20140127
  Serious: Yes (Death)
  Sender: FDA-Public Use
  Company Number: CA-B.I. PHARMACEUTICALS,INC./RIDGEFIELD-2013-CN-00019CN

PATIENT
  Age: 75 Year
  Sex: Male
  Weight: 90 kg

DRUGS (9)
  1. PRADAX [Suspect]
     Dosage: 300 MG
     Route: 048
  2. AMILORIDE HYDROCHLORIDE TABLETS, USP [Concomitant]
  3. AMLODIPINE [Concomitant]
  4. BEZALIP SR [Concomitant]
  5. EZETROL [Concomitant]
  6. HYDROCHLOROTHIAZIDE [Concomitant]
  7. INSPRA [Concomitant]
  8. LIPITOR [Concomitant]
  9. METOPROLOL [Concomitant]

REACTIONS (1)
  - Cerebral haemorrhage [Fatal]
